FAERS Safety Report 14968678 (Version 1)
Quarter: 2018Q2

REPORT INFORMATION
  Report Type: Spontaneous
  Country: DE (occurrence: DE)
  Receive Date: 20180604
  Receipt Date: 20180604
  Transmission Date: 20180711
  Serious: Yes (Death, Other)
  Sender: FDA-Public Use
  Company Number: DE-HQ SPECIALTY-DE-2018INT000084

PATIENT

DRUGS (2)
  1. DOXORUBICIN [Suspect]
     Active Substance: DOXORUBICIN
     Indication: MESOTHELIOMA MALIGNANT RECURRENT
     Dosage: UNK MG/M2, UNK
     Route: 033
  2. CISPLATIN. [Suspect]
     Active Substance: CISPLATIN
     Indication: MESOTHELIOMA MALIGNANT RECURRENT
     Dosage: UNK MG/M2, UNK
     Route: 033

REACTIONS (1)
  - Tumour lysis syndrome [Fatal]
